FAERS Safety Report 6880950-7 (Version None)
Quarter: 2010Q2

REPORT INFORMATION
  Report Type: 
  Country: None (occurrence: None)
  Receive Date: 20100630
  Receipt Date: 20100318
  Transmission Date: 20101027
  Serious: No
  Sender: FDA-Public Use
  Company Number: 1000012590

PATIENT
  Age: 75 Year
  Sex: Female

DRUGS (12)
  1. BYSTOLIC [Suspect]
     Indication: HYPERTENSION
     Dosage: 5 MG (5 MG,1 IN 1 D), ORAL
     Route: 048
     Dates: start: 20100201
  2. ALLERGY SHOTS (NOS) [Suspect]
     Indication: ALLERGY TO ARTHROPOD STING
  3. EPINEPHRINE PEN [Concomitant]
  4. BENICAR [Concomitant]
  5. CARDIZEM [Concomitant]
  6. TEKTURNA [Concomitant]
  7. ACIPHEX [Concomitant]
  8. CELEBREX [Concomitant]
  9. ZOLOFT [Concomitant]
  10. LUNESTA [Concomitant]
  11. TRAMADOL HYDROCHLORIDE [Concomitant]
  12. LIALDA [Concomitant]

REACTIONS (1)
  - SKIN REACTION [None]
